FAERS Safety Report 24932783 (Version 1)
Quarter: 2025Q1

REPORT INFORMATION
  Report Type: Spontaneous
  Country: DE (occurrence: DE)
  Receive Date: 20250205
  Receipt Date: 20250205
  Transmission Date: 20250409
  Serious: No
  Sender: EXELIXIS
  Company Number: DE-IPSEN Group, Research and Development-2024-19425

PATIENT
  Age: 54 Year
  Sex: Male

DRUGS (8)
  1. CABOMETYX [Suspect]
     Active Substance: CABOZANTINIB S-MALATE
     Indication: Product used for unknown indication
     Route: 048
     Dates: start: 20240704
  2. LOPERAMIDE [Concomitant]
     Active Substance: LOPERAMIDE
  3. LEVOTHYROXINE [Concomitant]
     Active Substance: LEVOTHYROXINE
  4. METAMIZOLE [Concomitant]
     Active Substance: METAMIZOLE
  5. CITALOPRAM [Concomitant]
     Active Substance: CITALOPRAM
  6. CANDESARTAN [Concomitant]
     Active Substance: CANDESARTAN
  7. EDOXABAN TOSYLATE [Concomitant]
     Active Substance: EDOXABAN TOSYLATE
  8. ELTROX [Concomitant]

REACTIONS (1)
  - Product dose omission issue [Unknown]
